FAERS Safety Report 6631597-9 (Version None)
Quarter: 2010Q1

REPORT INFORMATION
  Report Type: 
  Country: None (occurrence: None)
  Receive Date: 20100312
  Receipt Date: 20100310
  Transmission Date: 20100710
  Serious: Yes (Death, Hospitalization)
  Sender: FDA-Public Use
  Company Number: PHHY2009US58282

PATIENT
  Sex: Male
  Weight: 69.841 kg

DRUGS (1)
  1. EXJADE [Suspect]
     Dosage: 1500 MG, QD
     Route: 048

REACTIONS (3)
  - DEATH [None]
  - LOWER LIMB FRACTURE [None]
  - TREATMENT NONCOMPLIANCE [None]
